FAERS Safety Report 18822721 (Version 3)
Quarter: 2021Q1

REPORT INFORMATION
  Report Type: Spontaneous
  Country: PT (occurrence: PT)
  Receive Date: 20210202
  Receipt Date: 20210308
  Transmission Date: 20210419
  Serious: Yes (Hospitalization, Other)
  Sender: FDA-Public Use
  Company Number: NVSC2021PT023096

PATIENT
  Age: 53 Year
  Sex: Female

DRUGS (7)
  1. ADALIMUMAB [Suspect]
     Active Substance: ADALIMUMAB
     Indication: ENTEROPATHIC SPONDYLITIS
     Dosage: UNK
     Route: 065
  2. REMICADE [Suspect]
     Active Substance: INFLIXIMAB
     Indication: ENTEROPATHIC SPONDYLITIS
     Dosage: UNK
     Route: 042
  3. SULFASALAZINE. [Concomitant]
     Active Substance: SULFASALAZINE
     Indication: PRODUCT USED FOR UNKNOWN INDICATION
     Dosage: 2 G, QD
     Route: 065
  4. CELECOXIB. [Concomitant]
     Active Substance: CELECOXIB
     Indication: PRODUCT USED FOR UNKNOWN INDICATION
     Dosage: 100 MG, QD
     Route: 065
  5. DEFLAZACORT [Concomitant]
     Active Substance: DEFLAZACORT
     Indication: PRODUCT USED FOR UNKNOWN INDICATION
     Dosage: 15 MG, QD
     Route: 065
  6. ADALIMUMAB [Suspect]
     Active Substance: ADALIMUMAB
     Indication: SPONDYLITIS
  7. REMICADE [Suspect]
     Active Substance: INFLIXIMAB
     Indication: SPONDYLITIS

REACTIONS (13)
  - Proteinuria [Unknown]
  - Antineutrophil cytoplasmic antibody positive [Unknown]
  - Psoriasis [Unknown]
  - Sinusitis [Unknown]
  - Paradoxical psoriasis [Unknown]
  - Glomerulonephritis rapidly progressive [Unknown]
  - Tubulointerstitial nephritis [Unknown]
  - Decreased appetite [Unknown]
  - Microcytic anaemia [Recovered/Resolved]
  - Product use in unapproved indication [Unknown]
  - Granulomatosis with polyangiitis [Recovering/Resolving]
  - Malaise [Unknown]
  - Off label use [Unknown]
